FAERS Safety Report 7465040-7 (Version None)
Quarter: 2011Q2

REPORT INFORMATION
  Report Type: 
  Country: None (occurrence: None)
  Receive Date: 20110509
  Receipt Date: 20100826
  Transmission Date: 20111010
  Serious: No
  Sender: FDA-Public Use
  Company Number: US-SANOFI-AVENTIS-2010SA053248

PATIENT
  Age: 67 Year
  Sex: Male

DRUGS (2)
  1. LANTUS [Suspect]
     Dosage: DOSE:22 UNIT(S)
     Route: 058
  2. APIDRA [Suspect]
     Dosage: SLIDING SCALE DOSE WITH MEALS
     Route: 058

REACTIONS (2)
  - PRURITUS [None]
  - URTICARIA [None]
